FAERS Safety Report 14619023 (Version 1)
Quarter: 2018Q1

REPORT INFORMATION
  Report Type: Spontaneous
  Country: US (occurrence: US)
  Receive Date: 20180309
  Receipt Date: 20180309
  Transmission Date: 20180509
  Serious: No
  Sender: FDA-Public Use
  Company Number: None

PATIENT
  Age: 74 Year
  Sex: Male
  Weight: 108.86 kg

DRUGS (11)
  1. LEVOFLOXACIN 500MG [Suspect]
     Active Substance: LEVOFLOXACIN
     Indication: AMMONIA
     Route: 048
     Dates: start: 20180126, end: 20180128
  2. FINASTERIDE. [Concomitant]
     Active Substance: FINASTERIDE
  3. FISH OIL [Concomitant]
     Active Substance: FISH OIL
  4. ASPIRIN. [Concomitant]
     Active Substance: ASPIRIN
  5. VITAMIN B12 [Concomitant]
     Active Substance: CYANOCOBALAMIN
  6. SIMVASTATIN. [Concomitant]
     Active Substance: SIMVASTATIN
  7. TERAZOSIN [Concomitant]
     Active Substance: TERAZOSIN\TERAZOSIN HYDROCHLORIDE
  8. MACUHEALTH [Concomitant]
  9. LISINOPRIL. [Concomitant]
     Active Substance: LISINOPRIL
  10. IRON [Concomitant]
     Active Substance: IRON
  11. ACTOS [Concomitant]
     Active Substance: PIOGLITAZONE HYDROCHLORIDE

REACTIONS (14)
  - Decreased appetite [None]
  - Dry mouth [None]
  - Nausea [None]
  - Chills [None]
  - Insomnia [None]
  - Paraesthesia [None]
  - Sensation of foreign body [None]
  - Eye pain [None]
  - Headache [None]
  - Anxiety [None]
  - Psychomotor hyperactivity [None]
  - Restlessness [None]
  - Palpitations [None]
  - Hypoaesthesia [None]

NARRATIVE: CASE EVENT DATE: 20180128
